FAERS Safety Report 23554104 (Version 1)
Quarter: 2024Q1

REPORT INFORMATION
  Report Type: Spontaneous
  Country: US (occurrence: None)
  Receive Date: 20240222
  Receipt Date: 20240222
  Transmission Date: 20240410
  Serious: Yes (Hospitalization)
  Sender: FDA-Public Use
  Company Number: None

PATIENT
  Age: 56 Year
  Sex: Male
  Weight: 130.7 kg

DRUGS (1)
  1. CISPLATIN [Suspect]
     Active Substance: CISPLATIN

REACTIONS (8)
  - Nausea [None]
  - Vomiting [None]
  - Mental status changes [None]
  - Moaning [None]
  - Unresponsive to stimuli [None]
  - Cerebrovascular accident [None]
  - Toxicity to various agents [None]
  - Hyperkalaemia [None]

NARRATIVE: CASE EVENT DATE: 20240111
